FAERS Safety Report 7382246-6 (Version None)
Quarter: 2011Q1

REPORT INFORMATION
  Report Type: 
  Country: None (occurrence: None)
  Receive Date: 20110329
  Receipt Date: 20110321
  Transmission Date: 20110831
  Serious: Yes (Other)
  Sender: FDA-Public Use
  Company Number: FR-MERCK-1101FRA00053

PATIENT
  Age: 41 Year
  Sex: Male

DRUGS (12)
  1. SINEMET CR [Suspect]
     Route: 048
     Dates: start: 20000501, end: 20000101
  2. SINEMET CR [Suspect]
     Route: 048
     Dates: start: 20001101, end: 20031101
  3. PERGOLIDE MESYLATE [Suspect]
     Route: 048
     Dates: start: 20020601, end: 20020101
  4. PERGOLIDE MESYLATE [Suspect]
     Route: 048
     Dates: start: 20031101, end: 20040301
  5. PERGOLIDE MESYLATE [Suspect]
     Route: 048
     Dates: start: 20020101, end: 20031101
  6. SINEMET CR [Suspect]
     Route: 048
     Dates: start: 20040301, end: 20060201
  7. PERGOLIDE MESYLATE [Suspect]
     Indication: PARKINSON'S DISEASE
     Route: 048
     Dates: start: 20001101, end: 20020601
  8. PERGOLIDE MESYLATE [Suspect]
     Route: 048
     Dates: start: 20050101, end: 20060201
  9. SINEMET CR [Suspect]
     Indication: PARKINSON'S DISEASE
     Route: 048
     Dates: start: 20031101, end: 20040301
  10. SINEMET CR [Suspect]
     Route: 048
     Dates: start: 20000101, end: 20001101
  11. PERGOLIDE MESYLATE [Suspect]
     Route: 048
     Dates: start: 20040301, end: 20050101
  12. BROMOCRIPTINE MESYLATE [Concomitant]
     Indication: PARKINSON'S DISEASE
     Route: 048
     Dates: start: 19991101, end: 20001101

REACTIONS (5)
  - PSYCHOMOTOR HYPERACTIVITY [None]
  - HYPERSEXUALITY [None]
  - ABNORMAL BEHAVIOUR [None]
  - PATHOLOGICAL GAMBLING [None]
  - DELIRIUM [None]
